FAERS Safety Report 5431103-0 (Version None)
Quarter: 2007Q3

REPORT INFORMATION
  Report Type: 
  Country: None (occurrence: None)
  Receive Date: 20070830
  Receipt Date: 20070214
  Transmission Date: 20080115
  Serious: No
  Sender: FDA-Public Use
  Company Number: A0639564A

PATIENT
  Age: 53 Year
  Sex: Female

DRUGS (4)
  1. WELLBUTRIN XL [Suspect]
     Indication: DEPRESSION
     Dosage: 150MG PER DAY
     Route: 048
     Dates: start: 20061225
  2. CORTISONE INJECTIONS [Concomitant]
  3. MORPHINE [Concomitant]
  4. BETA BLOCKER [Concomitant]

REACTIONS (1)
  - HYPERHIDROSIS [None]
